FAERS Safety Report 8863365 (Version 1)
Quarter: 2012Q4

REPORT INFORMATION
  Report Type: 
  Country: CN (occurrence: CN)
  Receive Date: 20121025
  Receipt Date: 20121025
  Transmission Date: 20130627
  Serious: Yes (Other)
  Sender: FDA-Public Use
  Company Number: CN-GLAXOSMITHKLINE-B0839977A

PATIENT
  Sex: Female
  Weight: 58.5 kg

DRUGS (1)
  1. CEFUROXIME SODIUM [Suspect]
     Indication: UPPER RESPIRATORY TRACT INFECTION
     Dosage: 2.25G Per day
     Route: 042
     Dates: start: 20110617, end: 20110617

REACTIONS (5)
  - Anaphylactoid reaction [Recovered/Resolved]
  - Erythema [Recovered/Resolved]
  - Rash [Recovered/Resolved]
  - Chest discomfort [Recovered/Resolved]
  - Hypoaesthesia oral [Recovered/Resolved]
